FAERS Safety Report 6248985-5 (Version None)
Quarter: 2009Q2

REPORT INFORMATION
  Report Type: 
  Country: None (occurrence: None)
  Receive Date: 20090625
  Receipt Date: 20090611
  Transmission Date: 20091009
  Serious: Yes (Hospitalization, Other)
  Sender: FDA-Public Use
  Company Number: APP200900328

PATIENT
  Sex: Male

DRUGS (2)
  1. PROTAMINE SULFATE [Suspect]
     Indication: PROCOAGULANT THERAPY
     Dates: start: 20090611, end: 20090611
  2. HEPARIN SODIUM INJECTION [Concomitant]

REACTIONS (3)
  - CARDIOMEGALY [None]
  - CIRCULATORY COLLAPSE [None]
  - HYPOTENSION [None]
